FAERS Safety Report 4834697-9 (Version None)
Quarter: 2005Q4

REPORT INFORMATION
  Report Type: 
  Country: None (occurrence: None)
  Receive Date: 20051122
  Receipt Date: 20051102
  Transmission Date: 20060501
  Serious: Yes (Other)
  Sender: FDA-Public Use
  Company Number: DE-GLAXOSMITHKLINE-D0047869A

PATIENT
  Age: 57 Year
  Sex: Female
  Weight: 72 kg

DRUGS (2)
  1. HYCAMTIN [Suspect]
     Indication: METASTASES TO MENINGES
     Dosage: 3MG PER DAY
     Route: 042
     Dates: start: 20051011, end: 20051014
  2. CYTARABINE [Suspect]
     Indication: METASTASES TO MENINGES
     Dosage: 1AMP UNKNOWN
     Route: 065

REACTIONS (2)
  - AMAUROSIS [None]
  - OPTIC NEURITIS [None]
